FAERS Safety Report 10214562 (Version 1)
Quarter: 2014Q2

REPORT INFORMATION
  Report Type: Spontaneous
  Country: US (occurrence: None)
  Receive Date: 20140602
  Receipt Date: 20140602
  Transmission Date: 20141212
  Serious: No
  Sender: FDA-Public Use
  Company Number: None

PATIENT
  Age: 05 Year
  Sex: Male

DRUGS (1)
  1. NORDITROPIN FLEXPRO [Suspect]
     Indication: HYPOPITUITARISM
     Dosage: 0.5 MG ONCE A DAY SQ
     Route: 058
     Dates: start: 20140502, end: 20140602

REACTIONS (1)
  - Rash generalised [None]
